FAERS Safety Report 8608591 (Version 21)
Quarter: 2015Q3

REPORT INFORMATION
  Report Type: Spontaneous
  Country: US (occurrence: US)
  Receive Date: 20120611
  Receipt Date: 20150812
  Transmission Date: 20151125
  Serious: Yes (Death, Hospitalization, Other)
  Sender: FDA-Public Use
  Company Number: US-GLAXOSMITHKLINE-A0980658A

PATIENT
  Age: 52 Year
  Sex: Female
  Weight: 62 kg

DRUGS (17)
  1. FLOLAN [Suspect]
     Active Substance: EPOPROSTENOL SODIUM
     Dosage: UNK
     Dates: start: 20060124
  2. FLOLAN [Suspect]
     Active Substance: EPOPROSTENOL SODIUM
     Indication: PULMONARY HYPERTENSION
     Dosage: UNK
     Dates: start: 20060124
  3. FLOLAN [Suspect]
     Active Substance: EPOPROSTENOL SODIUM
     Dosage: UNK
     Dates: start: 20060124
  4. FLOLAN [Suspect]
     Active Substance: EPOPROSTENOL SODIUM
     Dosage: UNK
     Dates: start: 20060124
  5. SPIRONOLACTONE. [Concomitant]
     Active Substance: SPIRONOLACTONE
  6. FLOLAN [Suspect]
     Active Substance: EPOPROSTENOL SODIUM
     Indication: COR PULMONALE CHRONIC
     Dosage: 40.5 NG/KG/MIN CONTINUOUSLY (CONCENTRATION 45,000 NG/ML; 1.5 MG VIAL STRENGTH)56 NG/KG/MIN, CON[...]
     Route: 042
     Dates: start: 20060124
  7. FLOLAN [Suspect]
     Active Substance: EPOPROSTENOL SODIUM
     Dosage: UNK
     Dates: start: 20060124
  8. FLOLAN [Suspect]
     Active Substance: EPOPROSTENOL SODIUM
     Dosage: UNK
     Dates: start: 20060216
  9. FLOLAN [Suspect]
     Active Substance: EPOPROSTENOL SODIUM
     Dosage: 40 NG/KG/MINUTE CONTINUOUSLY
  10. FLOLAN [Suspect]
     Active Substance: EPOPROSTENOL SODIUM
     Dosage: UNK
     Dates: start: 20060124
  11. FLOLAN [Suspect]
     Active Substance: EPOPROSTENOL SODIUM
     Dosage: UNK
     Dates: start: 20060124
  12. FLOLAN [Suspect]
     Active Substance: EPOPROSTENOL SODIUM
     Dosage: 41 NG/KG/MIN
  13. REVATIO [Concomitant]
     Active Substance: SILDENAFIL CITRATE
     Indication: PULMONARY ARTERIAL HYPERTENSION
     Dosage: 20 MG THREE TIMES A DAY, TOTAL DAILY DOSE OF 60 MG
     Route: 048
     Dates: start: 20061205
  14. BUMEX [Concomitant]
     Active Substance: BUMETANIDE
  15. K-DUR [Concomitant]
     Active Substance: POTASSIUM CHLORIDE
  16. FLOLAN [Suspect]
     Active Substance: EPOPROSTENOL SODIUM
     Dosage: 41 NG/KG/MIN CONTINUOUSLY
  17. LETARIS [Concomitant]
     Active Substance: AMBRISENTAN

REACTIONS (13)
  - Fluid retention [Unknown]
  - Laboratory test [Unknown]
  - Death [Fatal]
  - Adverse event [Recovering/Resolving]
  - Pulmonary arterial hypertension [Recovering/Resolving]
  - Syncope [Unknown]
  - Electrolyte imbalance [Recovering/Resolving]
  - Diarrhoea [Unknown]
  - Scleroderma [Recovering/Resolving]
  - Cardiac disorder [Recovering/Resolving]
  - Fluid overload [Unknown]
  - Dyspnoea [Recovering/Resolving]
  - Lung disorder [Recovering/Resolving]

NARRATIVE: CASE EVENT DATE: 201306
